FAERS Safety Report 9981110 (Version 2)
Quarter: 2014Q1

REPORT INFORMATION
  Report Type: Spontaneous
  Country: GB (occurrence: None)
  Receive Date: 20140305
  Receipt Date: 20140314
  Transmission Date: 20141002
  Serious: Yes (Hospitalization, Other)
  Sender: FDA-Public Use
  Company Number: AUR-APL-2014-02281

PATIENT
  Age: 22 Year
  Sex: Female

DRUGS (7)
  1. QUETIAPINE (QUETIAPINE) [Suspect]
     Indication: PRODUCT USED FOR UNKNOWN INDICATION
     Dosage: 400 MG, 1 IN 1 D
     Route: 048
     Dates: end: 20140127
  2. CLOZARIL (CLOZAPINE) [Suspect]
     Indication: BORDERLINE PERSONALITY DISORDER
     Dosage: 75 MG, 1 IN 1 D
     Route: 048
     Dates: start: 20140121, end: 20140127
  3. CLOZARIL (CLOZAPINE) [Suspect]
     Indication: OFF LABEL USE
     Dosage: 75 MG, 1 IN 1 D
     Route: 048
     Dates: start: 20140121, end: 20140127
  4. CLOZARIL (CLOZAPINE) [Suspect]
     Indication: SCHIZOPHRENIA
     Dosage: 75 MG, 1 IN 1 D
     Route: 048
     Dates: start: 20140121, end: 20140127
  5. AMITRIPTYLINE [Concomitant]
  6. HYDROXYZINE [Concomitant]
  7. VALPROIC ACID [Concomitant]

REACTIONS (4)
  - Epilepsy [None]
  - Convulsion [None]
  - Off label use [None]
  - Malaise [None]
